FAERS Safety Report 5607063-6 (Version None)
Quarter: 2008Q1

REPORT INFORMATION
  Report Type: 
  Country: None (occurrence: None)
  Receive Date: 20080129
  Receipt Date: 20080122
  Transmission Date: 20080703
  Serious: Yes (Other)
  Sender: FDA-Public Use
  Company Number: JP-PFIZER INC-2007107645

PATIENT
  Age: 82 Year
  Sex: Female

DRUGS (2)
  1. ATARAX [Suspect]
     Dosage: DAILY DOSE:50MG-FREQ:ONCE
     Route: 042
  2. INSULIN [Concomitant]

REACTIONS (5)
  - ABDOMINAL DISTENSION [None]
  - HALLUCINATION [None]
  - NAUSEA [None]
  - RASH MACULAR [None]
  - SOMNOLENCE [None]
